FAERS Safety Report 4828549-8 (Version None)
Quarter: 2005Q4

REPORT INFORMATION
  Report Type: 
  Country: None (occurrence: None)
  Receive Date: 20051110
  Receipt Date: 20051028
  Transmission Date: 20060501
  Serious: Yes (Death, Life-Threatening, Hospitalization)
  Sender: FDA-Public Use
  Company Number: 218356

PATIENT
  Age: 66 Year
  Sex: Female
  Weight: 54.6 kg

DRUGS (9)
  1. AVASTIN [Suspect]
     Indication: OVARIAN CANCER
     Dosage: 5 MG/KG, INTRAVENOUS
     Route: 042
     Dates: start: 20050317, end: 20050802
  2. PACLITAXEL [Concomitant]
  3. LIPITOR [Concomitant]
  4. AMBIEN [Concomitant]
  5. CELEXA [Concomitant]
  6. LACTULOSE [Concomitant]
  7. CARAFATE [Concomitant]
  8. NEXIUM [Concomitant]
  9. COLACE            (DOCUSATE SODIUM) [Concomitant]

REACTIONS (12)
  - BILIARY DILATATION [None]
  - GASTROINTESTINAL CARCINOMA [None]
  - HEPATIC ATROPHY [None]
  - HEPATIC NEOPLASM [None]
  - ILEAL PERFORATION [None]
  - ILEUS [None]
  - INTESTINAL OBSTRUCTION [None]
  - PERICARDIAL EFFUSION [None]
  - PERITONEAL CARCINOMA [None]
  - PLEURAL EFFUSION [None]
  - PORTAL VEIN STENOSIS [None]
  - REFLUX OESOPHAGITIS [None]
